FAERS Safety Report 16609127 (Version 23)
Quarter: 2022Q2

REPORT INFORMATION
  Report Type: Other
  Country: CA (occurrence: CA)
  Receive Date: 20190722
  Receipt Date: 20220413
  Transmission Date: 20220721
  Serious: Yes (Life-Threatening, Hospitalization, Other)
  Sender: FDA-Public Use
  Company Number: CA-APOTEX-2019AP018502

PATIENT
  Age: 56 Year
  Sex: Male

DRUGS (146)
  1. ESCITALOPRAM OXALATE [Suspect]
     Active Substance: ESCITALOPRAM OXALATE
     Indication: Product used for unknown indication
     Dosage: 1 DOSAGE FORM, QD
     Route: 065
  2. ESCITALOPRAM OXALATE [Suspect]
     Active Substance: ESCITALOPRAM OXALATE
     Dosage: UNK
     Route: 065
  3. TRAZODONE HYDROCHLORIDE [Suspect]
     Active Substance: TRAZODONE HYDROCHLORIDE
     Indication: Product used for unknown indication
     Dosage: 1 DOSAGE FORM, QD
     Route: 048
  4. TRAZODONE HYDROCHLORIDE [Suspect]
     Active Substance: TRAZODONE HYDROCHLORIDE
     Dosage: UNK, QD
     Route: 065
  5. TAMSULOSIN [Suspect]
     Active Substance: TAMSULOSIN
     Indication: Product used for unknown indication
     Dosage: 1 DOSAGE FORM, QD
     Route: 048
  6. TAMSULOSIN [Suspect]
     Active Substance: TAMSULOSIN
     Dosage: 1 DOSAGE FORM, QD
     Route: 065
  7. TAMSULOSIN [Suspect]
     Active Substance: TAMSULOSIN
     Dosage: UNK
     Route: 048
  8. ESCITALOPRAM [Suspect]
     Active Substance: ESCITALOPRAM OXALATE
     Indication: Prinzmetal angina
     Dosage: 1 DOSAGE FORM, QD
     Route: 065
  9. ESCITALOPRAM [Suspect]
     Active Substance: ESCITALOPRAM OXALATE
     Dosage: 1 DOSAGE FORM
     Route: 065
  10. ESCITALOPRAM [Suspect]
     Active Substance: ESCITALOPRAM OXALATE
     Dosage: UNK, QD
     Route: 065
  11. AMLODIPINE [Suspect]
     Active Substance: AMLODIPINE BESYLATE
     Indication: Product used for unknown indication
     Dosage: 1.5 DOSAGE FORM, QD
     Route: 065
  12. AMLODIPINE [Suspect]
     Active Substance: AMLODIPINE BESYLATE
     Dosage: UNK, QD
     Route: 065
  13. DILTIAZEM [Suspect]
     Active Substance: DILTIAZEM
     Indication: Product used for unknown indication
     Dosage: 1 DOSAGE FORM, QD
     Route: 048
  14. DILTIAZEM [Suspect]
     Active Substance: DILTIAZEM
     Dosage: UNK, QD
     Route: 048
  15. DILTIAZEM [Suspect]
     Active Substance: DILTIAZEM
     Dosage: 1 DOSAGE FORM, QD
     Route: 065
  16. CLONAZEPAM [Suspect]
     Active Substance: CLONAZEPAM
     Indication: Product used for unknown indication
     Dosage: 1 DOSAGE FORM, TID
     Route: 065
  17. CLONAZEPAM [Suspect]
     Active Substance: CLONAZEPAM
     Dosage: 3 DOSAGE FORM, 1 DOSE EVERY 8 HOURS
     Route: 048
  18. CLONAZEPAM [Suspect]
     Active Substance: CLONAZEPAM
     Dosage: 3 DOSAGE FORM, QD
     Route: 048
  19. ROSUVASTATIN [Suspect]
     Active Substance: ROSUVASTATIN
     Indication: Product used for unknown indication
     Dosage: 1 DOSAGE FORM, QD
     Route: 048
  20. ROSUVASTATIN [Suspect]
     Active Substance: ROSUVASTATIN
     Dosage: 4 DOSAGE FORM, QD
     Route: 065
  21. ROSUVASTATIN [Suspect]
     Active Substance: ROSUVASTATIN
     Dosage: 1 DOSAGE FORM, QD
     Route: 065
  22. ROSUVASTATIN [Suspect]
     Active Substance: ROSUVASTATIN
     Dosage: UNK, QD
     Route: 048
  23. ROSUVASTATIN [Suspect]
     Active Substance: ROSUVASTATIN
     Dosage: UNK
     Route: 048
  24. ALPRAZOLAM [Suspect]
     Active Substance: ALPRAZOLAM
     Indication: Product used for unknown indication
     Dosage: UNK
     Route: 065
  25. CICLOPIROX [Suspect]
     Active Substance: CICLOPIROX
     Indication: Product used for unknown indication
     Dosage: 1 DOSAGE FORM, QD
     Route: 065
  26. CICLOPIROX [Suspect]
     Active Substance: CICLOPIROX
     Dosage: UNK
     Route: 065
  27. ZOPICLONE [Suspect]
     Active Substance: ZOPICLONE
     Indication: Product used for unknown indication
     Dosage: 1 DOSAGE FORM, QD
     Route: 048
  28. ASPIRIN [Suspect]
     Active Substance: ASPIRIN
     Indication: Product used for unknown indication
     Dosage: 1 DOSAGE FORM, QD
     Route: 065
  29. ASPIRIN [Suspect]
     Active Substance: ASPIRIN
     Dosage: 1 DOSAGE FORM, QD
     Route: 048
  30. ASPIRIN [Suspect]
     Active Substance: ASPIRIN
     Dosage: 81 MILLIGRAM, QD
     Route: 048
  31. ASPIRIN [Suspect]
     Active Substance: ASPIRIN
     Dosage: UNK
     Route: 065
  32. BISOPROLOL [Suspect]
     Active Substance: BISOPROLOL
     Indication: Product used for unknown indication
     Dosage: 1 DOSAGE FORM, QD
     Route: 065
  33. BISOPROLOL [Suspect]
     Active Substance: BISOPROLOL
     Dosage: UNK, QD
     Route: 065
  34. BISOPROLOL [Suspect]
     Active Substance: BISOPROLOL
     Dosage: UNK, QD
     Route: 048
  35. TRAZODONE [Suspect]
     Active Substance: TRAZODONE HYDROCHLORIDE
     Indication: Product used for unknown indication
     Dosage: 1 DOSAGE FORM, QD
     Route: 048
  36. ACETAMINOPHEN [Suspect]
     Active Substance: ACETAMINOPHEN
     Indication: Product used for unknown indication
     Dosage: 160 MILLIGRAM
     Route: 065
  37. RAMIPRIL [Suspect]
     Active Substance: RAMIPRIL
     Indication: Product used for unknown indication
     Dosage: 4 DOSAGE FORM, Q.6H
     Route: 065
  38. RAMIPRIL [Suspect]
     Active Substance: RAMIPRIL
     Dosage: 4 DOSAGE FORM, QID
     Route: 065
  39. RAMIPRIL [Suspect]
     Active Substance: RAMIPRIL
     Dosage: 4 DOSAGE FORM, QD
     Route: 065
  40. RAMIPRIL [Suspect]
     Active Substance: RAMIPRIL
     Dosage: 4 DOSAGE FORM, QD
     Route: 048
  41. RAMIPRIL [Suspect]
     Active Substance: RAMIPRIL
     Dosage: 1 DOSAGE FORM, Q.6H
     Route: 065
  42. NITROGLYCERIN [Suspect]
     Active Substance: NITROGLYCERIN
     Indication: Prinzmetal angina
     Dosage: 1 DOSAGE FORM, QD
     Route: 065
  43. NITROGLYCERIN [Suspect]
     Active Substance: NITROGLYCERIN
     Dosage: UNK, QD
     Route: 048
  44. NITROGLYCERIN [Suspect]
     Active Substance: NITROGLYCERIN
     Dosage: 1 DOSAGE FORM, QD
     Route: 048
  45. NITROGLYCERIN [Suspect]
     Active Substance: NITROGLYCERIN
     Dosage: UNK, QD
     Route: 065
  46. NITROGLYCERIN [Suspect]
     Active Substance: NITROGLYCERIN
     Dosage: 1 DOSAGE FORM, TID
     Route: 048
  47. NITROGLYCERIN [Suspect]
     Active Substance: NITROGLYCERIN
     Dosage: UNK
     Route: 048
  48. METOCLOPRAMIDE HYDROCHLORIDE [Suspect]
     Active Substance: METOCLOPRAMIDE HYDROCHLORIDE
     Indication: Migraine
     Dosage: 1 DOSAGE FORM, 1 DOSE EVERY 8 HOURS
     Route: 065
  49. METOCLOPRAMIDE HYDROCHLORIDE [Suspect]
     Active Substance: METOCLOPRAMIDE HYDROCHLORIDE
     Dosage: 3 DOSAGE FORM, QD
     Route: 065
  50. METOCLOPRAMIDE HYDROCHLORIDE [Suspect]
     Active Substance: METOCLOPRAMIDE HYDROCHLORIDE
     Dosage: 1 DOSAGE FORM, QD
     Route: 065
  51. METOCLOPRAMIDE HYDROCHLORIDE [Suspect]
     Active Substance: METOCLOPRAMIDE HYDROCHLORIDE
     Dosage: UNK, QD
     Route: 065
  52. METOCLOPRAMIDE HYDROCHLORIDE [Suspect]
     Active Substance: METOCLOPRAMIDE HYDROCHLORIDE
     Dosage: UNK, TID
     Route: 065
  53. METOCLOPRAMIDE HYDROCHLORIDE [Suspect]
     Active Substance: METOCLOPRAMIDE HYDROCHLORIDE
     Dosage: UNK
     Route: 048
  54. HYDROCORTISONE [Suspect]
     Active Substance: HYDROCORTISONE
     Indication: Product used for unknown indication
     Dosage: 1 DOSAGE FORM, QD
     Route: 061
  55. HYDROCORTISONE [Suspect]
     Active Substance: HYDROCORTISONE
     Dosage: UNK, QD
     Route: 061
  56. HYDROCORTISONE [Suspect]
     Active Substance: HYDROCORTISONE
     Dosage: 1 DOSAGE FORM, QD
     Route: 065
  57. BRILINTA [Suspect]
     Active Substance: TICAGRELOR
     Indication: Product used for unknown indication
     Dosage: 1 DOSAGE FORM, BID
     Route: 065
  58. BRILINTA [Suspect]
     Active Substance: TICAGRELOR
     Dosage: 1 DOSAGE FORM, Q.12H
     Route: 048
  59. BRILINTA [Suspect]
     Active Substance: TICAGRELOR
     Dosage: 2 DOSAGE FORM, QD
     Route: 048
  60. BRILINTA [Suspect]
     Active Substance: TICAGRELOR
     Dosage: UNK, BID
     Route: 065
  61. BRILINTA [Suspect]
     Active Substance: TICAGRELOR
     Dosage: UNK
     Route: 048
  62. BRILINTA [Suspect]
     Active Substance: TICAGRELOR
     Dosage: UNK, QD
     Route: 065
  63. BRILINTA [Suspect]
     Active Substance: TICAGRELOR
     Dosage: UNK
     Route: 065
  64. BRILINTA [Suspect]
     Active Substance: TICAGRELOR
     Dosage: UNK, BID
     Route: 048
  65. BRILINTA [Suspect]
     Active Substance: TICAGRELOR
     Dosage: 2 DOSAGE FORM, QD
     Route: 065
  66. BRILINTA [Suspect]
     Active Substance: TICAGRELOR
     Dosage: 2 DOSAGE FORM, Q.12H
     Route: 065
  67. DELATESTRYL [Suspect]
     Active Substance: TESTOSTERONE ENANTHATE
     Indication: Product used for unknown indication
     Dosage: 0.5 ML, Q.O.WK.
     Route: 030
  68. DELATESTRYL [Suspect]
     Active Substance: TESTOSTERONE ENANTHATE
     Dosage: 1 DOSAGE FORM, Q.O.D.
     Route: 030
  69. DELATESTRYL [Suspect]
     Active Substance: TESTOSTERONE ENANTHATE
     Dosage: 0.5 MILLILITER, CYCLICAL
     Route: 065
  70. DELATESTRYL [Suspect]
     Active Substance: TESTOSTERONE ENANTHATE
     Dosage: 1 DOSAGE FORM, Q.O.WK.
     Route: 065
  71. DELATESTRYL [Suspect]
     Active Substance: TESTOSTERONE ENANTHATE
     Dosage: 5 MILLILITER, Q.O.WK.
     Route: 065
  72. DELATESTRYL [Suspect]
     Active Substance: TESTOSTERONE ENANTHATE
     Dosage: 0.5 MILLILITER
     Route: 030
  73. DELATESTRYL [Suspect]
     Active Substance: TESTOSTERONE ENANTHATE
     Dosage: 0.5 MILLILITER, QD
     Route: 065
  74. DELATESTRYL [Suspect]
     Active Substance: TESTOSTERONE ENANTHATE
     Dosage: 1 DOSAGE FORM, BID
     Route: 030
  75. DELATESTRYL [Suspect]
     Active Substance: TESTOSTERONE ENANTHATE
     Dosage: 0.5 MILLILITER
     Route: 065
  76. DELATESTRYL [Suspect]
     Active Substance: TESTOSTERONE ENANTHATE
     Dosage: 5 MILLILITER, Q.WK.
     Route: 065
  77. DEXILANT [Suspect]
     Active Substance: DEXLANSOPRAZOLE
     Indication: Product used for unknown indication
     Dosage: 1 DOSAGE FORM, QD
     Route: 048
  78. DEXILANT [Suspect]
     Active Substance: DEXLANSOPRAZOLE
     Dosage: 0.5 MILLILITER, QD
     Route: 048
  79. DEXILANT [Suspect]
     Active Substance: DEXLANSOPRAZOLE
     Dosage: 1 DOSAGE FORM, QD
     Route: 065
  80. ASPIRIN [Suspect]
     Active Substance: ASPIRIN
     Indication: Product used for unknown indication
     Dosage: 1 DOSAGE FORM, QD
     Route: 065
  81. METOCLOPRAMIDE [Suspect]
     Active Substance: METOCLOPRAMIDE
     Indication: Migraine
     Dosage: 1 DOSAGE FORM, TID
     Route: 048
  82. METOCLOPRAMIDE [Suspect]
     Active Substance: METOCLOPRAMIDE
     Dosage: 3 DOSAGE FORM, QD
     Route: 065
  83. METOCLOPRAMIDE [Suspect]
     Active Substance: METOCLOPRAMIDE
     Dosage: 1 DOSAGE FORM, TID
     Route: 065
  84. NASONEX [Suspect]
     Active Substance: MOMETASONE FUROATE
     Indication: Product used for unknown indication
     Dosage: 1 DOSAGE FORM, QD, INTRA-NASAL
     Route: 045
  85. NASONEX [Suspect]
     Active Substance: MOMETASONE FUROATE
     Dosage: UNK, QD
  86. NASONEX [Suspect]
     Active Substance: MOMETASONE FUROATE
     Dosage: UNK, QD
     Route: 065
  87. NASONEX [Suspect]
     Active Substance: MOMETASONE FUROATE
     Dosage: UNK, QD
     Route: 045
  88. NITRO-DUR [Suspect]
     Active Substance: NITROGLYCERIN
     Indication: Product used for unknown indication
     Dosage: 1 DOSAGE FORM, QD
     Route: 065
  89. NITRO-DUR [Suspect]
     Active Substance: NITROGLYCERIN
     Dosage: UNK
     Route: 048
  90. NITRO-DUR [Suspect]
     Active Substance: NITROGLYCERIN
     Dosage: 1 DOSAGE FORM, QD
     Route: 048
  91. NITRO-DUR [Suspect]
     Active Substance: NITROGLYCERIN
     Dosage: UNK, QD
     Route: 065
  92. ZOPICLONE [Suspect]
     Active Substance: ZOPICLONE
     Indication: Product used for unknown indication
     Dosage: 1 DOSAGE FORM, QD
     Route: 065
  93. ZOPICLONE [Suspect]
     Active Substance: ZOPICLONE
     Dosage: UNK, QD
     Route: 065
  94. ZOPICLONE [Suspect]
     Active Substance: ZOPICLONE
     Dosage: 1 DOSAGE FORM, QD
     Route: 048
  95. NASONEX [Suspect]
     Active Substance: MOMETASONE FUROATE
     Indication: Product used for unknown indication
     Dosage: UNK
     Route: 065
  96. SYNTHROID [Suspect]
     Active Substance: LEVOTHYROXINE SODIUM
     Indication: Product used for unknown indication
     Dosage: 1 DOSAGE FORM, QD
     Route: 065
  97. SYNTHROID [Suspect]
     Active Substance: LEVOTHYROXINE SODIUM
     Dosage: UNK, QD
     Route: 065
  98. ACETAMINOPHEN\CODEINE PHOSPHATE [Suspect]
     Active Substance: ACETAMINOPHEN\CODEINE PHOSPHATE
     Indication: Product used for unknown indication
     Dosage: 1 DOSAGE FORM, QID
     Route: 065
  99. BISOPROLOL FUMARATE [Suspect]
     Active Substance: BISOPROLOL FUMARATE
     Indication: Product used for unknown indication
     Dosage: 1 DF, QD
     Route: 048
  100. NITROGLYCERIN [Suspect]
     Active Substance: NITROGLYCERIN
     Indication: Prinzmetal angina
     Dosage: UNK
     Route: 048
  101. NITROGLYCERIN [Suspect]
     Active Substance: NITROGLYCERIN
     Indication: Prinzmetal angina
     Dosage: 1 DOSAGE FORM
     Route: 048
  102. NITROGLYCERIN [Suspect]
     Active Substance: NITROGLYCERIN
     Indication: Prinzmetal angina
     Dosage: UNK
     Route: 048
  103. NITROGLYCERIN [Suspect]
     Active Substance: NITROGLYCERIN
     Dosage: 1 DOSAGE FORM, QD
     Route: 048
  104. NITROGLYCERIN [Suspect]
     Active Substance: NITROGLYCERIN
     Dosage: 1 DOSAGE FORM, QD
     Route: 065
  105. NITROGLYCERIN [Suspect]
     Active Substance: NITROGLYCERIN
     Dosage: 1 DOSAGE FORM, TID
     Route: 065
  106. NITROGLYCERIN [Suspect]
     Active Substance: NITROGLYCERIN
     Dosage: 1 DOSAGE FORM, Q.6H
     Route: 048
  107. HYDROCORTISONE [Suspect]
     Active Substance: HYDROCORTISONE
     Indication: Product used for unknown indication
     Dosage: 1 DOSAGE FORM, QD
     Route: 061
  108. HYDROCORTISONE [Suspect]
     Active Substance: HYDROCORTISONE
     Dosage: 1 DOSAGE FORM
     Route: 065
  109. LEVOTHYROXINE SODIUM [Suspect]
     Active Substance: LEVOTHYROXINE SODIUM
     Indication: Product used for unknown indication
     Dosage: 1 DOSAGE FORM, QD
     Route: 065
  110. LEVOTHYROXINE SODIUM [Suspect]
     Active Substance: LEVOTHYROXINE SODIUM
     Dosage: UNK
     Route: 065
  111. NITROGLYCERIN [Suspect]
     Active Substance: NITROGLYCERIN
     Indication: Prinzmetal angina
     Dosage: 1 DOSAGE FORM, TID
     Route: 065
  112. NITROGLYCERIN [Suspect]
     Active Substance: NITROGLYCERIN
     Dosage: 1 DOSAGE FORM
     Route: 048
  113. RAMIPRIL [Suspect]
     Active Substance: RAMIPRIL
     Indication: Product used for unknown indication
     Dosage: 1 DOSAGE FORM, QID
     Route: 065
  114. RAMIPRIL [Suspect]
     Active Substance: RAMIPRIL
     Dosage: 1 DOSAGE FORM, 1 EVERY 4 DAYS
     Route: 065
  115. RAMIPRIL [Suspect]
     Active Substance: RAMIPRIL
     Indication: Product used for unknown indication
     Dosage: 1 DOSAGE FORM
     Route: 048
  116. NITRO-DUR [Suspect]
     Active Substance: NITROGLYCERIN
     Indication: Product used for unknown indication
     Dosage: 1 DOSAGE FORM, QD
     Route: 048
  117. NITRO-DUR [Suspect]
     Active Substance: NITROGLYCERIN
     Dosage: UNK
     Route: 048
  118. RIVOTRIL [Suspect]
     Active Substance: CLONAZEPAM
     Indication: Product used for unknown indication
     Dosage: 1 DOSAGE FORM, TID
     Route: 048
  119. RIVOTRIL [Suspect]
     Active Substance: CLONAZEPAM
     Dosage: UNK, QD
     Route: 048
  120. RIVOTRIL [Suspect]
     Active Substance: CLONAZEPAM
     Dosage: UNK, TID
     Route: 065
  121. NITROGLYCERIN [Suspect]
     Active Substance: NITROGLYCERIN
     Indication: Prinzmetal angina
     Dosage: UNK
     Route: 048
  122. NITROGLYCERIN [Suspect]
     Active Substance: NITROGLYCERIN
     Indication: Prinzmetal angina
     Dosage: UNK
     Route: 048
  123. NITROGLYCERIN [Suspect]
     Active Substance: NITROGLYCERIN
     Dosage: 1 DOSAGE FORM, QD
     Route: 065
  124. MORNIFLUMATE [Suspect]
     Active Substance: MORNIFLUMATE
     Indication: Product used for unknown indication
     Dosage: 1 DOSAGE FORM, QD
     Route: 065
  125. MORNIFLUMATE [Suspect]
     Active Substance: MORNIFLUMATE
     Dosage: 1 DOSAGE FORM, QD
     Route: 048
  126. TICAGRELOR [Suspect]
     Active Substance: TICAGRELOR
     Indication: Product used for unknown indication
     Dosage: 1 DOSAGE FORM, Q.12H
     Route: 065
  127. ACETAMINOPHEN\CODEINE PHOSPHATE [Suspect]
     Active Substance: ACETAMINOPHEN\CODEINE PHOSPHATE
     Indication: Product used for unknown indication
     Dosage: UNK
     Route: 048
  128. ACETAMINOPHEN\CODEINE PHOSPHATE [Suspect]
     Active Substance: ACETAMINOPHEN\CODEINE PHOSPHATE
     Dosage: UNK, QID
     Route: 065
  129. ACETAMINOPHEN\CODEINE PHOSPHATE [Suspect]
     Active Substance: ACETAMINOPHEN\CODEINE PHOSPHATE
     Dosage: UNK, QD
     Route: 048
  130. ACETAMINOPHEN\CODEINE PHOSPHATE [Suspect]
     Active Substance: ACETAMINOPHEN\CODEINE PHOSPHATE
     Dosage: UNK, QID
     Route: 065
  131. TESTOSTERONE [Suspect]
     Active Substance: TESTOSTERONE
     Indication: Product used for unknown indication
     Dosage: 0.5 MILLILITER
     Route: 065
  132. TESTOSTERONE [Suspect]
     Active Substance: TESTOSTERONE
     Dosage: UNK
     Route: 030
  133. ASPIRIN [Suspect]
     Active Substance: ASPIRIN
     Indication: Product used for unknown indication
     Dosage: UNK, QD
     Route: 048
  134. ASPIRIN [Suspect]
     Active Substance: ASPIRIN
     Dosage: 81.0 MILLIGRAM, QD
     Route: 065
  135. ASPIRIN [Suspect]
     Active Substance: ASPIRIN
     Dosage: UNK, QD
     Route: 065
  136. ASPIRIN [Suspect]
     Active Substance: ASPIRIN
     Dosage: UNK
     Route: 065
  137. MORNIFLUMATE [Suspect]
     Active Substance: MORNIFLUMATE
     Indication: Product used for unknown indication
     Dosage: UNK
     Route: 065
  138. ACETAMINOPHEN\CODEINE PHOSPHATE [Suspect]
     Active Substance: ACETAMINOPHEN\CODEINE PHOSPHATE
     Indication: Product used for unknown indication
     Dosage: UNK
     Route: 065
  139. HYDROMORPHONE [Concomitant]
     Active Substance: HYDROMORPHONE
     Indication: Product used for unknown indication
     Dosage: UNK
     Route: 065
  140. PREDNISONE [Concomitant]
     Active Substance: PREDNISONE
     Indication: Product used for unknown indication
     Dosage: UNK
     Route: 065
  141. ASPIRIN [Concomitant]
     Active Substance: ASPIRIN
     Indication: Prinzmetal angina
     Dosage: 1 DOSAGE FORM, QD
     Route: 048
  142. BISOPROLOL FUMARATE [Concomitant]
     Active Substance: BISOPROLOL FUMARATE
     Indication: Product used for unknown indication
     Dosage: 1 DOSAGE FORM, QD
     Route: 065
  143. NITROGLYCERIN [Concomitant]
     Active Substance: NITROGLYCERIN
     Indication: Prinzmetal angina
     Dosage: UNK
     Route: 048
  144. RIVOTRIL [Concomitant]
     Active Substance: CLONAZEPAM
     Indication: Product used for unknown indication
     Dosage: UNK
     Route: 065
  145. RIVOTRIL [Concomitant]
     Active Substance: CLONAZEPAM
     Dosage: 0.5 MILLIGRAM
     Route: 065
  146. ESCITALOPRAM OXALATE [Concomitant]
     Active Substance: ESCITALOPRAM OXALATE
     Indication: Product used for unknown indication
     Dosage: UNK
     Route: 065

REACTIONS (3)
  - Device dislocation [Recovered/Resolved]
  - Device malfunction [Recovered/Resolved]
  - Drug ineffective [Recovered/Resolved]
